FAERS Safety Report 15306498 (Version 1)
Quarter: 2018Q3

REPORT INFORMATION
  Report Type: Spontaneous
  Country: US (occurrence: US)
  Receive Date: 20180822
  Receipt Date: 20180822
  Transmission Date: 20181010
  Serious: Yes (Other)
  Sender: FDA-Public Use
  Company Number: US-MIDATECHPHARMA-2018-US-013401

PATIENT
  Age: 68 Year
  Sex: Female

DRUGS (2)
  1. TAMOXIFEN (NON?SPECIFIC) [Suspect]
     Active Substance: TAMOXIFEN
     Indication: BREAST CANCER
  2. PREDNISOLONE ACETATE 1% [Concomitant]
     Active Substance: PREDNISOLONE ACETATE
     Dosage: ONCE DAILY IN LEFT EYE

REACTIONS (1)
  - Corneal graft rejection [Unknown]
